FAERS Safety Report 18587605 (Version 2)
Quarter: 2025Q4

REPORT INFORMATION
  Report Type: Spontaneous
  Country: EU (occurrence: EU)
  Receive Date: 20201207
  Receipt Date: 20251209
  Transmission Date: 20260117
  Serious: Yes (Life-Threatening, Hospitalization, Other)
  Sender: BAYER HEALTHCARE PHARMACEUTICALS INC.
  Company Number: EU-BAYER-2020-258643

PATIENT
  Age: 24 Year
  Sex: Female

DRUGS (14)
  1. DROSPIRENONE [Suspect]
     Active Substance: DROSPIRENONE
     Indication: Contraception
     Dosage: UNK
     Route: 048
     Dates: start: 202006
  2. LEVONORGESTREL [Suspect]
     Active Substance: LEVONORGESTREL
     Dosage: 14?G/DAY
     Route: 015
     Dates: start: 201711
  3. DIPYRONE [Suspect]
     Active Substance: DIPYRONE
     Indication: Pain
     Route: 030
  4. DIANE (CYPROTERONE ACETATE\ETHINYL ESTRADIOL) [Suspect]
     Active Substance: CYPROTERONE ACETATE\ETHINYL ESTRADIOL
  5. DICLOFENAC [Suspect]
     Active Substance: DICLOFENAC
     Indication: Pain
     Dosage: 3 TIMES DAILY
  6. OMEPRAZOLE [Suspect]
     Active Substance: OMEPRAZOLE
     Indication: Prophylaxis
     Dosage: 20 MG, BID
  7. VERAPAMIL [Suspect]
     Active Substance: VERAPAMIL HYDROCHLORIDE
     Dosage: TWICE DAILY
  8. APIXABAN [Concomitant]
     Active Substance: APIXABAN
     Dosage: TWICE DAILY FOR UP TO 6 MONTHS
  9. CEFUROXIME [Concomitant]
     Active Substance: CEFUROXIME
     Dosage: TWICE DAILY FOR 5 DAYS
  10. NADROPARIN CALCIUM [Concomitant]
     Active Substance: NADROPARIN CALCIUM
     Dosage: TWICE DAILY
     Route: 058
  11. METOPROLOL [Concomitant]
     Active Substance: METOPROLOL
  12. SODIUM CHLORIDE [Concomitant]
     Active Substance: SODIUM CHLORIDE
     Route: 042
  13. NIMESULIDE [Suspect]
     Active Substance: NIMESULIDE
     Indication: Pain
  14. KETOROLAC TROMETHAMINE [Suspect]
     Active Substance: KETOROLAC TROMETHAMINE
     Indication: Pain
     Dosage: 30 MG, ONCE
     Route: 030
     Dates: start: 20200919, end: 20200919

REACTIONS (16)
  - Pulmonary embolism [Recovering/Resolving]
  - Pneumonia bacterial [Recovered/Resolved]
  - Nephrolithiasis [None]
  - Gastrooesophageal reflux disease [None]
  - Abdominal pain [None]
  - Arthralgia [None]
  - Pyrexia [None]
  - Dyspnoea exertional [None]
  - Back pain [None]
  - Tachycardia [None]
  - Pleuritic pain [None]
  - Rash [None]
  - Product monitoring error [None]
  - Acute respiratory failure [None]
  - Oesophagitis [Unknown]
  - Off label use [Unknown]

NARRATIVE: CASE EVENT DATE: 20180801
